FAERS Safety Report 8866331 (Version 1)
Quarter: 2012Q4

REPORT INFORMATION
  Report Type: 
  Country: US (occurrence: US)
  Receive Date: 20121025
  Receipt Date: 20121025
  Transmission Date: 20130627
  Serious: Yes (Other)
  Sender: FDA-Public Use
  Company Number: US-ROCHE-784623

PATIENT
  Age: 17 Year
  Sex: Male
  Weight: 77.18 kg

DRUGS (8)
  1. ACCUTANE [Suspect]
     Indication: ACNE
     Route: 065
     Dates: start: 199905, end: 199907
  2. ACCUTANE [Suspect]
     Route: 065
     Dates: start: 200101, end: 200108
  3. HUMIBID [Concomitant]
  4. BACTRIM [Concomitant]
  5. ZITHROMAX Z-PAK [Concomitant]
  6. SINGULAIR [Concomitant]
  7. SULFATRIM [Concomitant]
  8. AZMACORT [Concomitant]

REACTIONS (9)
  - Inflammatory bowel disease [Unknown]
  - Colitis ulcerative [Unknown]
  - Stress [Unknown]
  - Crohn^s disease [Unknown]
  - Depression [Unknown]
  - Suicidal ideation [Unknown]
  - Fatigue [Unknown]
  - Lip dry [Unknown]
  - Dry skin [Unknown]
